FAERS Safety Report 9517114 (Version 1)
Quarter: 2013Q1

REPORT INFORMATION
  Report Type: Spontaneous
  Country: US (occurrence: None)
  Receive Date: 20130305
  Receipt Date: 20130305
  Transmission Date: 20140127
  Serious: Yes (Hospitalization)
  Sender: FDA-Public Use
  Company Number: 163-21880-12071922

PATIENT
  Age: 61 Year
  Sex: Male
  Weight: 98.61 kg

DRUGS (15)
  1. REVLIMID [Suspect]
     Indication: MYELODYSPLASTIC SYNDROME
     Route: 048
     Dates: start: 20120606
  2. JANUVIA (SITAGLIPTIN PHOSPHATE) [Concomitant]
  3. DEP-TESTOSTERONE (TESTOSTERONE CIPIONATE) [Concomitant]
  4. ENALAPRIL [Concomitant]
  5. TRAMADOL [Concomitant]
  6. RANITIDINE [Concomitant]
  7. ADVAIR (SERETIDE MITE) [Concomitant]
  8. CLONIDINE [Concomitant]
  9. HCTZ (HYDROCHLOROTHIAZIDE) [Concomitant]
  10. CELEXA (CITALOPRAM HYDROBROMIDE) [Concomitant]
  11. FLOMAX (TAMSULOSIN HYDROCHLORIDE) [Concomitant]
  12. SPIRIVA (TIOTROPIUM BROMIDE) [Concomitant]
  13. ASPIRIN (ACETYLSALICYLIC ACID) [Concomitant]
  14. LORTAB (VICODIN) [Concomitant]
  15. ALBUTEROL (SALBUTAMOL) [Concomitant]

REACTIONS (1)
  - Blood count abnormal [None]
